FAERS Safety Report 20726645 (Version 2)
Quarter: 2022Q2

REPORT INFORMATION
  Report Type: Spontaneous
  Country: US (occurrence: US)
  Receive Date: 20220419
  Receipt Date: 20220513
  Transmission Date: 20220721
  Serious: No
  Sender: FDA-Public Use
  Company Number: US-PFIZER INC-202200393526

PATIENT
  Age: 42 Year
  Sex: Female

DRUGS (1)
  1. IBRANCE [Suspect]
     Active Substance: PALBOCICLIB
     Dosage: 1 TABLET DAILY FOR 21 DAYS THEN 7 DAYS OFF
     Dates: start: 202111

REACTIONS (3)
  - Appetite disorder [Not Recovered/Not Resolved]
  - Malaise [Unknown]
  - Back pain [Unknown]
